FAERS Safety Report 8154510-4 (Version None)
Quarter: 2012Q1

REPORT INFORMATION
  Report Type: 
  Country: None (occurrence: None)
  Receive Date: 20120221
  Receipt Date: 20120208
  Transmission Date: 20120608
  Serious: Yes (Hospitalization, Other)
  Sender: FDA-Public Use
  Company Number: JP-NOVOPROD-344685

PATIENT
  Age: 77 Year
  Sex: Female
  Weight: 40 kg

DRUGS (11)
  1. NOVORAPID CHU FLEXPEN [Suspect]
     Indication: TYPE 1 DIABETES MELLITUS
     Dosage: 24 U, QD
     Route: 058
     Dates: start: 20110708
  2. SEDIEL [Concomitant]
     Dosage: 30 MG, QD
     Route: 048
     Dates: start: 20110708
  3. AMLODIPINE [Concomitant]
     Dosage: 5 MG, QD
     Route: 048
  4. HUMALOG [Concomitant]
     Dosage: 34 U, QD
     Route: 058
  5. AMOBAN [Concomitant]
     Dosage: 7.5 MG, QD
     Route: 048
  6. GRAMALIL [Concomitant]
     Dosage: 150 MG, QD
     Route: 048
  7. NOVOLIN N [Suspect]
     Indication: TYPE 1 DIABETES MELLITUS
     Dosage: 22 U, QD
     Route: 058
     Dates: start: 20061101, end: 20101101
  8. LANTUS [Concomitant]
     Dosage: 7UT/SC
  9. RISPERDAL [Concomitant]
     Dosage: 2 MG, QD
     Route: 048
  10. DEPAS [Concomitant]
     Dosage: 0.5 MG, QD
     Route: 048
  11. LUDIOMIL                           /00331902/ [Concomitant]
     Dosage: 20 MG, QD
     Route: 048

REACTIONS (3)
  - ANTI-INSULIN ANTIBODY [None]
  - SUBDURAL HAEMATOMA [None]
  - DIABETIC KETOACIDOSIS [None]
